FAERS Safety Report 8468737-5 (Version None)
Quarter: 2012Q2

REPORT INFORMATION
  Report Type: 
  Country: None (occurrence: None)
  Receive Date: 20120626
  Receipt Date: 20120612
  Transmission Date: 20120825
  Serious: Yes (Hospitalization, Other)
  Sender: FDA-Public Use
  Company Number: US-ROCHE-1077708

PATIENT
  Sex: Male

DRUGS (7)
  1. COPEGUS [Suspect]
     Dates: start: 20111215, end: 20120309
  2. COPEGUS [Suspect]
     Indication: HEPATITIS C
     Dates: start: 19970101, end: 19971101
  3. COPEGUS [Suspect]
     Dates: start: 20070101, end: 20080101
  4. PEGASYS [Suspect]
     Dates: start: 20070101, end: 20080101
  5. TELAPREVIR [Suspect]
     Indication: HEPATITIS C
     Dates: start: 20120112, end: 20120309
  6. PEGASYS [Suspect]
     Indication: HEPATITIS C
     Dates: start: 19970101, end: 19971101
  7. PEGASYS [Suspect]
     Dates: start: 20111215, end: 20120309

REACTIONS (8)
  - COLON CANCER [None]
  - OROPHARYNGEAL PAIN [None]
  - DRUG INEFFECTIVE [None]
  - WHITE BLOOD CELL COUNT DECREASED [None]
  - INCREASED UPPER AIRWAY SECRETION [None]
  - COUGH [None]
  - RED BLOOD CELL COUNT DECREASED [None]
  - DYSPHAGIA [None]
